FAERS Safety Report 5722430-8 (Version None)
Quarter: 2008Q2

REPORT INFORMATION
  Report Type: 
  Country: None (occurrence: None)
  Receive Date: 20080429
  Receipt Date: 20080414
  Transmission Date: 20081010
  Serious: Yes (Death, Hospitalization)
  Sender: FDA-Public Use
  Company Number: FR-GENENTECH-247973

PATIENT
  Sex: Female

DRUGS (5)
  1. AVASTIN [Suspect]
     Indication: BREAST CANCER
     Dosage: UNK, DAYS 1+15
     Dates: start: 20070726
  2. DEXAMETHASONE [Suspect]
     Indication: BREAST CANCER
     Dosage: 20 MG, UNK
     Route: 042
     Dates: start: 20070726
  3. ZOPHREN [Suspect]
     Indication: BREAST CANCER
     Dosage: 8 MG, UNK
     Route: 042
     Dates: start: 20070726
  4. PACLITAXEL [Suspect]
     Indication: BREAST CANCER
     Dosage: 124 MG, UNK
     Route: 042
     Dates: start: 20070726
  5. TAXOL [Concomitant]
     Indication: BREAST CANCER
     Dates: start: 20070710

REACTIONS (4)
  - CARDIAC ARREST [None]
  - INTESTINAL PERFORATION [None]
  - PERITONITIS [None]
  - SEPTIC SHOCK [None]
